FAERS Safety Report 24370606 (Version 2)
Quarter: 2025Q3

REPORT INFORMATION
  Report Type: Spontaneous
  Country: US (occurrence: US)
  Receive Date: 20240927
  Receipt Date: 20250925
  Transmission Date: 20251021
  Serious: No
  Sender: RECKITT BENCKISER
  Company Number: US-INDIVIOR US-INDV-140970-2023

PATIENT

DRUGS (2)
  1. PERSERIS [Suspect]
     Active Substance: RISPERIDONE
     Indication: Product used for unknown indication
     Dosage: 90 MILLIGRAM, QMO
     Route: 065
  2. PERSERIS [Suspect]
     Active Substance: RISPERIDONE

REACTIONS (2)
  - Product administered by wrong person [Recovered/Resolved]
  - Product preparation error [Recovered/Resolved]
